FAERS Safety Report 25032445 (Version 1)
Quarter: 2025Q1

REPORT INFORMATION
  Report Type: Spontaneous
  Country: US (occurrence: US)
  Receive Date: 20250303
  Receipt Date: 20250303
  Transmission Date: 20250408
  Serious: Yes (Other)
  Sender: MERCK SHARP & DOHME LLC
  Company Number: US-009507513-2258557

PATIENT
  Age: 80 Year
  Sex: Female

DRUGS (2)
  1. PEMBROLIZUMAB [Suspect]
     Active Substance: PEMBROLIZUMAB
     Indication: Lung neoplasm malignant
  2. B-12 injections [Concomitant]

REACTIONS (5)
  - Neuropathy peripheral [Recovering/Resolving]
  - Fall [Unknown]
  - Blood iron decreased [Unknown]
  - Vitamin B12 decreased [Unknown]
  - Endoscopy [Unknown]

NARRATIVE: CASE EVENT DATE: 20250219
